FAERS Safety Report 14775020 (Version 1)
Quarter: 2018Q2

REPORT INFORMATION
  Report Type: Not Available
  Country: US (occurrence: US)
  Receive Date: 20180418
  Receipt Date: 20180418
  Transmission Date: 20180711
  Serious: Yes (Hospitalization)
  Sender: FDA-Public Use
  Company Number: US-NEUROCRINE BIOSCIENCES INC.-2018NBI01039

PATIENT
  Age: 47 Year
  Sex: Male

DRUGS (1)
  1. INGREZZA [Suspect]
     Active Substance: VALBENAZINE
     Indication: TARDIVE DYSKINESIA
     Route: 048
     Dates: start: 20180116, end: 201802

REACTIONS (2)
  - Hospitalisation [Not Recovered/Not Resolved]
  - Sexually inappropriate behaviour [Unknown]

NARRATIVE: CASE EVENT DATE: 2018
